FAERS Safety Report 18634307 (Version 2)
Quarter: 2020Q4

REPORT INFORMATION
  Report Type: Spontaneous
  Country: IL (occurrence: IL)
  Receive Date: 20201218
  Receipt Date: 20201221
  Transmission Date: 20210114
  Serious: No
  Sender: FDA-Public Use
  Company Number: IL-ROCHE-2732186

PATIENT
  Age: 52 Year
  Sex: Male

DRUGS (1)
  1. ALECENSA [Suspect]
     Active Substance: ALECTINIB HYDROCHLORIDE
     Indication: NON-SMALL CELL LUNG CANCER
     Route: 065
     Dates: start: 202011

REACTIONS (3)
  - Blood creatine phosphokinase increased [Unknown]
  - Myalgia [Unknown]
  - Neuropathy peripheral [Unknown]
